FAERS Safety Report 5506743-0 (Version None)
Quarter: 2007Q4

REPORT INFORMATION
  Report Type: 
  Country: None (occurrence: None)
  Receive Date: 20071105
  Receipt Date: 20071024
  Transmission Date: 20080405
  Serious: Yes (Other)
  Sender: FDA-Public Use
  Company Number: US-AMGEN-STX247765

PATIENT
  Sex: Male

DRUGS (5)
  1. ENBREL [Suspect]
     Indication: ANKYLOSING SPONDYLITIS
     Route: 058
     Dates: start: 20051001
  2. TRICOR [Concomitant]
  3. LISINOPRIL [Concomitant]
  4. COZAAR [Concomitant]
  5. TOPROL-XL [Concomitant]

REACTIONS (2)
  - HEPATIC STEATOSIS [None]
  - MEMORY IMPAIRMENT [None]
